FAERS Safety Report 13280126 (Version 1)
Quarter: 2017Q1

REPORT INFORMATION
  Report Type: Spontaneous
  Country: US (occurrence: US)
  Receive Date: 20170228
  Receipt Date: 20170228
  Transmission Date: 20170428
  Serious: Yes (Disabling, Other)
  Sender: FDA-Public Use
  Company Number: None

PATIENT
  Age: 9 Month
  Sex: Female
  Weight: 10.8 kg

DRUGS (4)
  1. MIRALAX [Suspect]
     Active Substance: POLYETHYLENE GLYCOL 3350
     Indication: CONSTIPATION
     Dosage: ?          QUANTITY:1 CAPFUL;OTHER ROUTE:BY MOUTH IN DRINK?
     Route: 048
     Dates: start: 20160922, end: 20170210
  2. CULTREL REGULARITY PROBIOTIC [Concomitant]
  3. COCONUT OIL [Concomitant]
     Active Substance: COCONUT OIL
  4. OLLY TUMMY GUMMIES [Concomitant]

REACTIONS (7)
  - Sleep disorder [None]
  - Sleep terror [None]
  - Feeling abnormal [None]
  - Decreased interest [None]
  - Mood altered [None]
  - Obsessive-compulsive disorder [None]
  - Aggression [None]

NARRATIVE: CASE EVENT DATE: 20151024
